FAERS Safety Report 24372283 (Version 2)
Quarter: 2024Q4

REPORT INFORMATION
  Report Type: Spontaneous
  Country: US (occurrence: US)
  Receive Date: 20240927
  Receipt Date: 20241015
  Transmission Date: 20250115
  Serious: No
  Sender: ROCHE
  Company Number: US-ROCHE-10000089903

PATIENT
  Age: 62 Year
  Sex: Male

DRUGS (1)
  1. RITUXIMAB [Suspect]
     Active Substance: RITUXIMAB
     Indication: Neuromyelitis optica spectrum disorder
     Route: 042

REACTIONS (3)
  - Organising pneumonia [Unknown]
  - Pulmonary toxicity [Unknown]
  - Moraxella infection [Unknown]
